FAERS Safety Report 5421501-3 (Version None)
Quarter: 2007Q3

REPORT INFORMATION
  Report Type: 
  Country: None (occurrence: None)
  Receive Date: 20070725
  Receipt Date: 20061028
  Transmission Date: 20080115
  Serious: Yes (Other)
  Sender: FDA-Public Use
  Company Number: USA-2006-0025516

PATIENT
  Age: 26 Year
  Sex: Female

DRUGS (3)
  1. MS CONTIN [Suspect]
     Indication: BACK PAIN
     Dosage: 600 MG, DAILY
  2. OXYCONTIN [Concomitant]
  3. MARIJUANA [Concomitant]

REACTIONS (8)
  - DRUG DEPENDENCE [None]
  - DYSARTHRIA [None]
  - FALL [None]
  - INTENTIONAL DRUG MISUSE [None]
  - JOINT SPRAIN [None]
  - MUSCLE STRAIN [None]
  - ROAD TRAFFIC ACCIDENT [None]
  - SUBSTANCE ABUSE [None]
